FAERS Safety Report 24771911 (Version 2)
Quarter: 2025Q1

REPORT INFORMATION
  Report Type: Spontaneous
  Country: FR (occurrence: FR)
  Receive Date: 20241224
  Receipt Date: 20250103
  Transmission Date: 20250409
  Serious: Yes (Death, Hospitalization, Other)
  Sender: ASTELLAS
  Company Number: FR-GILEAD-2024-0697793

PATIENT
  Age: 79 Year
  Sex: Male
  Weight: 66.4 kg

DRUGS (4)
  1. AMPHOTERICIN B [Suspect]
     Active Substance: AMPHOTERICIN B
     Indication: Product used for unknown indication
     Route: 065
  2. FUNGIZONE [Suspect]
     Active Substance: AMPHOTERICIN B
     Indication: Brain abscess
     Route: 042
     Dates: start: 20241119
  3. KETAMINE [Concomitant]
     Active Substance: KETAMINE
     Indication: Product used for unknown indication
     Route: 065
     Dates: start: 20241118
  4. MORPHINE [Concomitant]
     Active Substance: MORPHINE
     Indication: Product used for unknown indication
     Route: 065
     Dates: start: 20241118

REACTIONS (3)
  - Accidental overdose [Fatal]
  - Cardio-respiratory arrest [Fatal]
  - Bradycardia [Fatal]

NARRATIVE: CASE EVENT DATE: 20241119
